FAERS Safety Report 4757854-9 (Version None)
Quarter: 2005Q3

REPORT INFORMATION
  Report Type: 
  Country: None (occurrence: None)
  Receive Date: 20050830
  Receipt Date: 20050822
  Transmission Date: 20060218
  Serious: Yes (Other)
  Sender: FDA-Public Use
  Company Number: HQWYE053822AUG05

PATIENT
  Sex: Male

DRUGS (3)
  1. EFFEXOR XR [Suspect]
     Dosage: 37.5 MG 1X PER 1 DAY; ORAL; 75 MG 1X PER 1 DAY; ORAL
     Route: 048
     Dates: start: 20050802, end: 20050814
  2. EFFEXOR XR [Suspect]
     Dosage: 37.5 MG 1X PER 1 DAY; ORAL; 75 MG 1X PER 1 DAY; ORAL
     Route: 048
     Dates: start: 20050815
  3. PAROXETINE HCL [Suspect]
     Dates: start: 20050715

REACTIONS (5)
  - ABNORMAL BEHAVIOUR [None]
  - DRUG INEFFECTIVE [None]
  - DRUG INTERACTION [None]
  - SCREAMING [None]
  - SEROTONIN SYNDROME [None]
